FAERS Safety Report 13795306 (Version 1)
Quarter: 2017Q3

REPORT INFORMATION
  Report Type: Spontaneous
  Country: US (occurrence: US)
  Receive Date: 20170726
  Receipt Date: 20170726
  Transmission Date: 20171127
  Serious: Yes (Other)
  Sender: FDA-Public Use
  Company Number: US-APOTEX-2017AP015963

PATIENT
  Age: 60 Year
  Sex: Male

DRUGS (1)
  1. ACYCLOVIR. [Suspect]
     Active Substance: ACYCLOVIR
     Indication: HERPES SIMPLEX TEST POSITIVE
     Dosage: UNK
     Route: 065

REACTIONS (3)
  - Mental status changes [Unknown]
  - Neurotoxicity [Unknown]
  - Hypertensive crisis [Unknown]
